FAERS Safety Report 5009394-X (Version None)
Quarter: 2006Q2

REPORT INFORMATION
  Report Type: 
  Country: None (occurrence: None)
  Receive Date: 20060522
  Receipt Date: 20060516
  Transmission Date: 20061013
  Serious: Yes (Hospitalization)
  Sender: FDA-Public Use
  Company Number: S06-USA-01200-01

PATIENT
  Age: 85 Year
  Sex: Male

DRUGS (9)
  1. NAMENDA [Suspect]
     Indication: COGNITIVE DISORDER
     Dosage: 10 MG BID PO
     Route: 048
     Dates: start: 20050301, end: 20060301
  2. SINEMET [Suspect]
     Indication: PARKINSON'S DISEASE
     Dosage: 1.5 TABLET QAM PO
     Route: 048
     Dates: end: 20060101
  3. HYTRIN [Suspect]
     Dosage: 5 MG QAM PO
     Route: 048
     Dates: end: 20060301
  4. WELLBUTRIN [Concomitant]
  5. RAZADYNE (GALANTAMINE) [Concomitant]
  6. PROVIGIL [Concomitant]
  7. PRIMIDONE [Concomitant]
  8. MIRAPEX [Concomitant]
  9. OSCAL (CALCIUM CARBONATE) [Concomitant]

REACTIONS (9)
  - BRAIN OEDEMA [None]
  - DISEASE PROGRESSION [None]
  - DRUG INTERACTION [None]
  - HYPOTENSION [None]
  - MEMORY IMPAIRMENT [None]
  - MENINGIOMA BENIGN [None]
  - PERSONALITY CHANGE [None]
  - POST PROCEDURAL COMPLICATION [None]
  - SYNCOPE [None]
